FAERS Safety Report 7970977-6 (Version None)
Quarter: 2011Q4

REPORT INFORMATION
  Report Type: 
  Country: None (occurrence: None)
  Receive Date: 20111212
  Receipt Date: 20111205
  Transmission Date: 20120403
  Serious: Yes (Other)
  Sender: FDA-Public Use
  Company Number: US-BRISTOL-MYERS SQUIBB COMPANY-16270795

PATIENT
  Sex: Male

DRUGS (2)
  1. TRUVADA [Suspect]
  2. SUSTIVA [Suspect]
     Indication: HIV INFECTION

REACTIONS (1)
  - JAW FRACTURE [None]
